FAERS Safety Report 20015931 (Version 1)
Quarter: 2021Q4

REPORT INFORMATION
  Report Type: Spontaneous
  Country: US (occurrence: None)
  Receive Date: 20211101
  Receipt Date: 20211101
  Transmission Date: 20220303
  Serious: Yes (Hospitalization)
  Sender: FDA-Public Use
  Company Number: None

PATIENT
  Sex: Male

DRUGS (10)
  1. COSENTYX [Suspect]
     Active Substance: SECUKINUMAB
     Indication: Psoriatic arthropathy
     Dosage: FREQUENCY : 3 TIMES A WEEK;?
     Route: 058
     Dates: start: 20180706
  2. AMOX/K [Concomitant]
  3. AMOXICILLIN [Concomitant]
     Active Substance: AMOXICILLIN
  4. BENZONATATE [Concomitant]
     Active Substance: BENZONATATE
  5. FOLIC ACID [Concomitant]
     Active Substance: FOLIC ACID
  6. ACETAMINOPHEN\HYDROCODONE [Concomitant]
     Active Substance: ACETAMINOPHEN\HYDROCODONE
  7. LORATADINE [Concomitant]
     Active Substance: LORATADINE
  8. METHOTREXATE [Concomitant]
     Active Substance: METHOTREXATE
  9. METRONIDAZOLE [Concomitant]
     Active Substance: METRONIDAZOLE
  10. MONTELUKAST [Concomitant]
     Active Substance: MONTELUKAST SODIUM

REACTIONS (2)
  - Product substitution issue [None]
  - Hospitalisation [None]
